FAERS Safety Report 5047199-4 (Version None)
Quarter: 2006Q3

REPORT INFORMATION
  Report Type: 
  Country: None (occurrence: None)
  Receive Date: 20060703
  Receipt Date: 20060623
  Transmission Date: 20061208
  Serious: Yes (Hospitalization, Other)
  Sender: FDA-Public Use
  Company Number: US017649

PATIENT
  Age: 54 Year
  Sex: Male

DRUGS (9)
  1. TRISENOX [Suspect]
     Indication: ACUTE PROMYELOCYTIC LEUKAEMIA
     Dosage: 12 MG QD INTRAVENOUS DRIP
     Route: 041
     Dates: start: 20051222, end: 20060219
  2. PREDNISOLONE [Suspect]
  3. METHYLPREDNISOLONE [Suspect]
  4. DALTEPARIN SODIUM [Concomitant]
  5. MICAFUNGIN SODIUM [Concomitant]
  6. ACYCLOVIR [Concomitant]
  7. AMIKACIN SULFATE [Concomitant]
  8. TAZOBACTAM PIPERACILLIN [Concomitant]
  9. CEFTAZIDIME [Concomitant]

REACTIONS (3)
  - C-REACTIVE PROTEIN INCREASED [None]
  - HYPERGLYCAEMIA [None]
  - PYREXIA [None]
